FAERS Safety Report 8285350-3 (Version None)
Quarter: 2012Q2

REPORT INFORMATION
  Report Type: 
  Country: None (occurrence: None)
  Receive Date: 20120413
  Receipt Date: 20120409
  Transmission Date: 20120825
  Serious: No
  Sender: FDA-Public Use
  Company Number: US-PFIZER INC-2012056876

PATIENT
  Sex: Female
  Weight: 53.515 kg

DRUGS (1)
  1. XALATAN [Suspect]
     Dosage: UNK

REACTIONS (4)
  - HYPERSENSITIVITY [None]
  - DIZZINESS [None]
  - COUGH [None]
  - OCULAR HYPERAEMIA [None]
